FAERS Safety Report 5846994-9 (Version None)
Quarter: 2008Q3

REPORT INFORMATION
  Report Type: 
  Country: None (occurrence: None)
  Receive Date: 20080815
  Receipt Date: 20080808
  Transmission Date: 20090109
  Serious: Yes (Life-Threatening, Hospitalization)
  Sender: FDA-Public Use
  Company Number: TH-ROCHE-576893

PATIENT
  Age: 54 Year
  Sex: Male

DRUGS (14)
  1. CLONAZEPAM [Suspect]
     Indication: INSOMNIA
     Dosage: AT NIGHT
     Route: 048
  2. CLONAZEPAM [Suspect]
     Dosage: 0.5 MG 1-2 TABLETS AS NEEDED, IST DAY OF HOSPITALISATION.
     Route: 048
  3. CLONAZEPAM [Suspect]
     Dosage: 2 MG 1 TABLET AS NEEDED
     Route: 048
  4. CLONAZEPAM [Suspect]
     Route: 048
  5. CLONAZEPAM [Suspect]
     Dosage: STRENGTH FORMULATION : 2MG TABLET DOSAGE REGIMEN : 1 TABLET HS.
     Route: 048
  6. HALOPERIDOL [Suspect]
     Indication: AGITATION
     Route: 048
  7. HALOPERIDOL [Suspect]
     Dosage: DOSING REGIMEN: 1 TABLET X 2
     Route: 048
  8. HALOPERIDOL [Suspect]
     Dosage: ROUTE: INTRAMUSCULAR STAT, AS NEEDED, EVERY FOUR HOURS
     Route: 030
  9. PERPHENAZINE [Suspect]
     Indication: DRUG USE FOR UNKNOWN INDICATION
     Dosage: DOSING REGIMEN REPORTED AS 1 TABLET X 3, AFTER MEALS
     Route: 048
  10. TRIHEXYPHENIDYL HCL [Concomitant]
     Route: 048
  11. TRIHEXYPHENIDYL HCL [Concomitant]
     Route: 048
  12. TRIHEXYPHENIDYL HCL [Concomitant]
     Dosage: DAY 1 OF HOSPITALISATION, AFTER MEALS
     Route: 048
  13. TRIHEXYPHENIDYL HCL [Concomitant]
     Dosage: HOSPITALISATION DAY 2-5
     Route: 048
  14. MULTI-VITAMIN [Concomitant]
     Dosage: DOSING REGIMEN REPORTED AS 1 TABLET X 3
     Route: 048

REACTIONS (8)
  - AGITATION [None]
  - AKATHISIA [None]
  - BLOOD CREATINE PHOSPHOKINASE INCREASED [None]
  - LABILE BLOOD PRESSURE [None]
  - LEUKOCYTOSIS [None]
  - MUSCLE RIGIDITY [None]
  - NEUROLEPTIC MALIGNANT SYNDROME [None]
  - PYREXIA [None]
